FAERS Safety Report 9886061 (Version 2)
Quarter: 2014Q1

REPORT INFORMATION
  Report Type: Spontaneous
  Country: US (occurrence: US)
  Receive Date: 20140210
  Receipt Date: 20140220
  Transmission Date: 20141002
  Serious: Yes (Hospitalization)
  Sender: FDA-Public Use
  Company Number: US-009507513-1402USA002239

PATIENT
  Age: 61 Year
  Sex: Male

DRUGS (1)
  1. METHYLPREDNISOLONE SODIUM SUCCINATE [Suspect]
     Indication: IDIOPATHIC PULMONARY FIBROSIS
     Dosage: 60 MG, TID

REACTIONS (1)
  - Substance-induced psychotic disorder [Recovering/Resolving]
